FAERS Safety Report 15953657 (Version 2)
Quarter: 2019Q1

REPORT INFORMATION
  Report Type: Spontaneous
  Country: FI (occurrence: FI)
  Receive Date: 20190213
  Receipt Date: 20190301
  Transmission Date: 20190417
  Serious: Yes (Other)
  Sender: FDA-Public Use
  Company Number: FI-ROCHE-2262421

PATIENT
  Age: 56 Year
  Sex: Female

DRUGS (3)
  1. LESCOL [Concomitant]
     Active Substance: FLUVASTATIN SODIUM
     Indication: BLOOD CHOLESTEROL
     Route: 065
  2. XOLAIR [Suspect]
     Active Substance: OMALIZUMAB
     Indication: URTICARIA
     Dosage: 300 MG, UNK (2X150 MG)
     Route: 058
     Dates: start: 20190129
  3. THYROXIN [Concomitant]
     Active Substance: LEVOTHYROXINE
     Indication: PRODUCT USED FOR UNKNOWN INDICATION
     Dosage: UNK
     Route: 065
     Dates: start: 1966

REACTIONS (10)
  - Abdominal distension [Not Recovered/Not Resolved]
  - Lip swelling [Recovered/Resolved]
  - Urticaria [Not Recovered/Not Resolved]
  - Swelling of eyelid [Recovered/Resolved]
  - Nausea [Unknown]
  - Needle issue [Unknown]
  - Drug ineffective [Unknown]
  - Swelling [Recovered/Resolved]
  - Swelling face [Recovered/Resolved]
  - Product storage error [Unknown]

NARRATIVE: CASE EVENT DATE: 20190129
